FAERS Safety Report 4954787-X (Version None)
Quarter: 2006Q1

REPORT INFORMATION
  Report Type: 
  Country: None (occurrence: None)
  Receive Date: 20060322
  Receipt Date: 20060303
  Transmission Date: 20060701
  Serious: Yes (Hospitalization)
  Sender: FDA-Public Use
  Company Number: BR200603001480

PATIENT
  Age: 55 Year
  Sex: Female
  Weight: 53 kg

DRUGS (6)
  1. FORTEO [Suspect]
     Indication: OSTEOPOROSIS
     Dosage: 20 UG, DAILY  (1/D), SUBCUTANEOUS
     Route: 058
     Dates: start: 20060107
  2. FORTEO PEN (FORTEO PEN) PEN, DISPOSABLE [Concomitant]
  3. TEGRETOL [Concomitant]
  4. AMITRIPTYLINE HCL [Concomitant]
  5. CLONAZEPAM [Concomitant]
  6. VITAMINS, OTHER COMBINATIONS [Concomitant]

REACTIONS (2)
  - FALL [None]
  - UPPER LIMB FRACTURE [None]
